FAERS Safety Report 14133334 (Version 8)
Quarter: 2018Q4

REPORT INFORMATION
  Report Type: Report from Study
  Country: DE (occurrence: DE)
  Receive Date: 20171026
  Receipt Date: 20181205
  Transmission Date: 20190204
  Serious: Yes (Hospitalization)
  Sender: FDA-Public Use
  Company Number: DE-BRISTOL-MYERS SQUIBB COMPANY-BMS-2017-042889

PATIENT
  Age: 62 Year
  Sex: Male

DRUGS (2)
  1. NIVOLUMAB [Suspect]
     Active Substance: NIVOLUMAB
     Indication: MALIGNANT MELANOMA
     Dosage: 90 MG, Q3WK
     Route: 042
     Dates: start: 20170508, end: 20170808
  2. IPILIMUMAB [Suspect]
     Active Substance: IPILIMUMAB
     Indication: MALIGNANT MELANOMA
     Dosage: 270 MG, Q3WK
     Route: 065
     Dates: start: 20170508, end: 20170808

REACTIONS (5)
  - Headache [Recovered/Resolved]
  - Gastritis [Recovered/Resolved]
  - Enzyme level increased [Not Recovered/Not Resolved]
  - Nausea [Recovered/Resolved]
  - Spleen disorder [Recovered/Resolved]

NARRATIVE: CASE EVENT DATE: 20170511
